FAERS Safety Report 18441086 (Version 1)
Quarter: 2020Q4

REPORT INFORMATION
  Report Type: Spontaneous
  Country: US (occurrence: US)
  Receive Date: 20201029
  Receipt Date: 20201029
  Transmission Date: 20210114
  Serious: Yes (Hospitalization, Other)
  Sender: FDA-Public Use
  Company Number: None

PATIENT
  Age: 74 Year
  Sex: Male

DRUGS (15)
  1. TRULICITY [Concomitant]
     Active Substance: DULAGLUTIDE
  2. TAMSULOSIN [Concomitant]
     Active Substance: TAMSULOSIN
  3. LANTUS [Concomitant]
     Active Substance: INSULIN GLARGINE
  4. GABAPENTIN. [Concomitant]
     Active Substance: GABAPENTIN
  5. HUMALOG [Concomitant]
     Active Substance: INSULIN LISPRO
  6. ORENCIA [Suspect]
     Active Substance: ABATACEPT
     Indication: RHEUMATOID ARTHRITIS
     Route: 058
     Dates: start: 20180830
  7. RABEPRAZOLE [Concomitant]
     Active Substance: RABEPRAZOLE
  8. EZETIMIDE [Concomitant]
  9. BACLOFEN. [Concomitant]
     Active Substance: BACLOFEN
  10. MITRAZAPINE [Concomitant]
  11. TRIAMT/HCTZ [Concomitant]
     Active Substance: HYDROCHLOROTHIAZIDE\TRIAMTERENE
  12. VASCEPA [Concomitant]
     Active Substance: ICOSAPENT ETHYL
  13. VITAMIN D [Concomitant]
     Active Substance: VITAMIN D NOS
  14. DULOXETINE. [Concomitant]
     Active Substance: DULOXETINE
  15. ALPRAZOLAM. [Concomitant]
     Active Substance: ALPRAZOLAM

REACTIONS (1)
  - Shoulder arthroplasty [None]

NARRATIVE: CASE EVENT DATE: 20200904
